FAERS Safety Report 9233342 (Version 2)
Quarter: 2013Q2

REPORT INFORMATION
  Report Type: Spontaneous
  Country: JP (occurrence: JP)
  Receive Date: 20130416
  Receipt Date: 20130531
  Transmission Date: 20140414
  Serious: Yes (Other)
  Sender: FDA-Public Use
  Company Number: JP-009507513-1304JPN001203

PATIENT
  Age: 19 Year
  Sex: Female
  Weight: 55 kg

DRUGS (7)
  1. BRIDION [Suspect]
     Indication: NEUROMUSCULAR BLOCKADE REVERSAL
     Dosage: 200 MG, QD DIVIDED DOSE FRECUENCY U
     Route: 042
     Dates: start: 20130326, end: 20130326
  2. ESLAX [Concomitant]
     Indication: NEUROMUSCULAR BLOCKING THERAPY
     Dosage: 50 MG, QD DIVIDED DOSE FRECUENCY UNKNOWN
     Route: 042
     Dates: start: 20130326, end: 20130326
  3. DIPRIVAN [Concomitant]
     Indication: SEDATIVE THERAPY
     Dosage: 50 UNK, UNK
     Route: 042
     Dates: start: 20130326, end: 20130326
  4. FENTANYL [Concomitant]
     Indication: SEDATIVE THERAPY
     Dosage: 250 MICROGRAM, QD DIVIDED DOSE FRECUENCY U
     Route: 042
     Dates: start: 20130326, end: 20130326
  5. FENTANYL [Concomitant]
     Indication: ANALGESIC THERAPY
  6. ROPION [Concomitant]
     Indication: ANALGESIC THERAPY
     Dosage: 50 MG, QD
     Route: 042
     Dates: start: 20130326, end: 20130326
  7. ALLEGRA [Concomitant]
     Indication: HOUSE DUST ALLERGY
     Route: 048

REACTIONS (2)
  - Erythema [Recovered/Resolved]
  - Urticaria [Recovered/Resolved]
